FAERS Safety Report 7550719-9 (Version None)
Quarter: 2011Q2

REPORT INFORMATION
  Report Type: 
  Country: None (occurrence: None)
  Receive Date: 20110616
  Receipt Date: 20110602
  Transmission Date: 20111010
  Serious: Yes (Other)
  Sender: FDA-Public Use
  Company Number: US-JNJFOC-20110404691

PATIENT
  Sex: Male
  Weight: 81.65 kg

DRUGS (8)
  1. ASCORBIC ACID [Concomitant]
     Indication: VITAMIN SUPPLEMENTATION
     Route: 048
  2. HUMALOG [Concomitant]
     Indication: DIABETES MELLITUS
     Dosage: 30 UNIT/SOLUTION, 30 UNITS ONCE OR TWICE DAILY BASED ON BLOOD SUGAR LEVELS
     Route: 058
     Dates: start: 20090101
  3. LANTUS [Concomitant]
     Indication: DIABETES MELLITUS
     Dosage: 30 UNITS/SOLUTION/30 UNITS/EVERY EVENING
     Route: 058
     Dates: start: 20090101
  4. REMICADE [Suspect]
     Indication: COLITIS ULCERATIVE
     Route: 042
     Dates: start: 20090623
  5. METFORMIN HCL [Concomitant]
     Indication: DIABETES MELLITUS
     Route: 048
     Dates: start: 19990101
  6. NABUMETONE [Concomitant]
     Indication: ARTHRITIS
     Route: 048
     Dates: start: 20010101
  7. ASPIRIN [Concomitant]
     Indication: CARDIAC DISORDER
     Route: 048
     Dates: start: 19900101
  8. CARTIA XT [Concomitant]
     Indication: CARDIAC DISORDER
     Route: 048
     Dates: start: 19900101

REACTIONS (5)
  - SNEEZING [None]
  - HYPOSMIA [None]
  - AGEUSIA [None]
  - SINUSITIS [None]
  - COUGH [None]
